APPROVED DRUG PRODUCT: PINDOLOL
Active Ingredient: PINDOLOL
Strength: 10MG
Dosage Form/Route: TABLET;ORAL
Application: A073661 | Product #002
Applicant: COSETTE PHARMACEUTICALS INC
Approved: Oct 31, 1993 | RLD: No | RS: No | Type: DISCN